FAERS Safety Report 7432100-6 (Version None)
Quarter: 2011Q2

REPORT INFORMATION
  Report Type: 
  Country: None (occurrence: None)
  Receive Date: 20110422
  Receipt Date: 20110413
  Transmission Date: 20111010
  Serious: Yes (Death, Hospitalization)
  Sender: FDA-Public Use
  Company Number: UG-JNJFOC-20110407671

PATIENT
  Sex: Female

DRUGS (3)
  1. INTELENCE [Suspect]
     Indication: HIV INFECTION
     Route: 065
  2. RALTEGRAVIR [Concomitant]
     Indication: HIV INFECTION
  3. PREZISTA [Suspect]
     Indication: HIV INFECTION
     Route: 065

REACTIONS (1)
  - DEATH [None]
